FAERS Safety Report 12265604 (Version 1)
Quarter: 2016Q2

REPORT INFORMATION
  Report Type: Spontaneous
  Country: RO (occurrence: RO)
  Receive Date: 20160413
  Receipt Date: 20160413
  Transmission Date: 20160815
  Serious: Yes (Other)
  Sender: FDA-Public Use
  Company Number: RO-FRESENIUS KABI-FK201601813

PATIENT
  Age: 48 Year
  Sex: Male

DRUGS (3)
  1. ALIMTA [Suspect]
     Active Substance: PEMETREXED DISODIUM
     Indication: NON-SMALL CELL LUNG CANCER STAGE IV
  2. CISPLATIN (MANUFACTURER UNKNOWN) [Suspect]
     Active Substance: CISPLATIN
     Indication: NON-SMALL CELL LUNG CANCER STAGE IV
     Route: 065
  3. PACLITAXEL (MANUFACTURER UNKNOWN) [Suspect]
     Active Substance: PACLITAXEL
     Indication: NON-SMALL CELL LUNG CANCER STAGE IV
     Route: 065

REACTIONS (6)
  - Vomiting [Unknown]
  - Neutropenia [Unknown]
  - Nausea [Unknown]
  - Peripheral motor neuropathy [Unknown]
  - Mucosal inflammation [Unknown]
  - Peripheral sensory neuropathy [Unknown]

NARRATIVE: CASE EVENT DATE: 201601
